FAERS Safety Report 6419303-4 (Version None)
Quarter: 2009Q4

REPORT INFORMATION
  Report Type: 
  Country: None (occurrence: None)
  Receive Date: 20091029
  Receipt Date: 20091020
  Transmission Date: 20100525
  Serious: Yes (Other)
  Sender: FDA-Public Use
  Company Number: US-ELI_LILLY_AND_COMPANY-US200910004864

PATIENT
  Sex: Male

DRUGS (9)
  1. HUMULIN 70/30 [Suspect]
     Indication: TYPE 2 DIABETES MELLITUS
     Dosage: UNK, AS NEEDED
  2. DILTIAZEM [Concomitant]
     Dosage: 300 MG, DAILY (1/D)
  3. ATENOLOL [Concomitant]
     Dosage: 25 MG, DAILY (1/D)
  4. HYDROCHLOROTHIAZIDE [Concomitant]
     Dosage: 50 MG, DAILY (1/D)
  5. ASPIRIN [Concomitant]
     Dosage: 81 MG, DAILY (1/D)
  6. CALTRATE [Concomitant]
     Dosage: 600 MG, DAILY (1/D)
  7. MAGNESIUM OXIDE [Concomitant]
     Dosage: 400 MG, DAILY (1/D)
  8. VITAMINS [Concomitant]
     Dosage: UNK, DAILY (1/D)
  9. PAROXETINE [Concomitant]
     Dosage: 20 MG, DAILY (1/D)

REACTIONS (7)
  - EMBOLIC STROKE [None]
  - INJECTION SITE PAIN [None]
  - INJECTION SITE SCAR [None]
  - PROSTATE CANCER [None]
  - RADIATION SKIN INJURY [None]
  - RECTAL HAEMORRHAGE [None]
  - WRONG TECHNIQUE IN DRUG USAGE PROCESS [None]
